FAERS Safety Report 24199592 (Version 1)
Quarter: 2024Q3

REPORT INFORMATION
  Report Type: Spontaneous
  Country: US (occurrence: US)
  Receive Date: 20240812
  Receipt Date: 20240812
  Transmission Date: 20241017
  Serious: No
  Sender: ASTELLAS
  Company Number: US-ASTELLAS-2023US035310

PATIENT
  Age: 73 Year
  Sex: Male

DRUGS (2)
  1. AMBISOME [Suspect]
     Active Substance: AMPHOTERICIN B
     Indication: Sinusitis
     Dosage: 600 MG, ONCE DAILY (NORMAL INFUSION)(1ST INFUSION STOPPED/INCOMPLETE)
     Route: 042
     Dates: start: 20231118, end: 20231118
  2. AMBISOME [Suspect]
     Active Substance: AMPHOTERICIN B
     Dosage: 500 MG, ONCE DAILY (Q24HR, INFUSED OVER 4 HRS)(SLOW/EXTENDED INFUSION)
     Route: 042
     Dates: start: 20231119, end: 20231127

REACTIONS (3)
  - Hypotension [Unknown]
  - Tachycardia [Unknown]
  - Off label use [Unknown]

NARRATIVE: CASE EVENT DATE: 20231118
